FAERS Safety Report 9859672 (Version 2)
Quarter: 2014Q1

REPORT INFORMATION
  Report Type: Spontaneous
  Country: US (occurrence: US)
  Receive Date: 20140131
  Receipt Date: 20140225
  Transmission Date: 20141002
  Serious: Yes (Hospitalization, Other)
  Sender: FDA-Public Use
  Company Number: US-GLAXOSMITHKLINE-A1058713A

PATIENT
  Age: 39 Year
  Sex: Female
  Weight: 70 kg

DRUGS (2)
  1. FLOLAN [Suspect]
     Indication: NEONATAL DISORDER
     Dosage: 9NGKM UNKNOWN
     Route: 042
     Dates: start: 20010613
  2. COUMADIN [Concomitant]

REACTIONS (3)
  - H1N1 influenza [Recovered/Resolved]
  - Bronchitis [Recovered/Resolved]
  - Medical device complication [Recovered/Resolved]
